FAERS Safety Report 6211790-X (Version None)
Quarter: 2009Q2

REPORT INFORMATION
  Report Type: 
  Country: None (occurrence: None)
  Receive Date: 20090528
  Receipt Date: 20090518
  Transmission Date: 20091009
  Serious: Yes (Other)
  Sender: FDA-Public Use
  Company Number: GXKR2009SE06002

PATIENT
  Age: 65 Year
  Sex: Female

DRUGS (1)
  1. SIMVASTATIN SANDOZ (NGX) (SIMVASTATIN) [Suspect]
     Indication: BLOOD PRESSURE INCREASED
     Dosage: ORAL
     Route: 048

REACTIONS (1)
  - NECROSIS [None]
